FAERS Safety Report 4693608-X (Version None)
Quarter: 2005Q2

REPORT INFORMATION
  Report Type: 
  Country: None (occurrence: None)
  Receive Date: 20050616
  Receipt Date: 20050606
  Transmission Date: 20051028
  Serious: Yes (Other)
  Sender: FDA-Public Use
  Company Number: HQWYE304307JUN05

PATIENT
  Age: 65 Year
  Sex: Male

DRUGS (1)
  1. PIPERACILLIN [Suspect]
     Indication: LUNG INFECTION PSEUDOMONAL
     Dosage: 6 GRAMS DAILY INTRAVENOUS
     Route: 042
     Dates: start: 20050312, end: 20050322

REACTIONS (4)
  - BLOOD LACTATE DEHYDROGENASE INCREASED [None]
  - COOMBS DIRECT TEST POSITIVE [None]
  - HAEMATOCRIT DECREASED [None]
  - HAEMOLYSIS [None]
